FAERS Safety Report 24193740 (Version 2)
Quarter: 2024Q4

REPORT INFORMATION
  Report Type: Spontaneous
  Country: JP (occurrence: JP)
  Receive Date: 20240809
  Receipt Date: 20241104
  Transmission Date: 20250114
  Serious: No
  Sender: ASTELLAS
  Company Number: JP-ASTELLAS-2024JP005835

PATIENT
  Age: 10 Decade
  Sex: Female

DRUGS (3)
  1. MIRABEGRON [Suspect]
     Active Substance: MIRABEGRON
     Indication: Product used for unknown indication
     Route: 048
  2. VIBEGRON [Concomitant]
     Active Substance: VIBEGRON
     Indication: Product used for unknown indication
     Route: 048
  3. VIBEGRON [Concomitant]
     Active Substance: VIBEGRON
     Route: 048

REACTIONS (1)
  - Visual impairment [Recovered/Resolved]
